FAERS Safety Report 11559502 (Version 1)
Quarter: 2015Q3

REPORT INFORMATION
  Report Type: Spontaneous
  Country: US (occurrence: US)
  Receive Date: 20150916
  Receipt Date: 20150916
  Transmission Date: 20151125
  Serious: No
  Sender: FDA-Public Use
  Company Number: US-ELI_LILLY_AND_COMPANY-US200808003017

PATIENT
  Age: 71 Year
  Sex: Female
  Weight: 76.82 kg

DRUGS (7)
  1. THIAZIDES [Concomitant]
     Active Substance: UNSPECIFIED INGREDIENT
     Indication: DIURETIC THERAPY
  2. FORTEO [Suspect]
     Active Substance: TERIPARATIDE
     Dosage: 20 UG, DAILY (1/D)
     Dates: start: 20080116
  3. CALCIUM WITH VITAMIN D [Concomitant]
     Active Substance: CALCIUM\VITAMIN D
     Dosage: UNK, 2/D
     Route: 048
  4. METFORMIN [Concomitant]
     Active Substance: METFORMIN HYDROCHLORIDE
  5. STARLIX [Concomitant]
     Active Substance: NATEGLINIDE
  6. FORTEO [Suspect]
     Active Substance: TERIPARATIDE
     Indication: OSTEOPOROSIS
     Dosage: 20 UG, DAILY (1/D)
     Dates: start: 200801
  7. BYETTA [Concomitant]
     Active Substance: EXENATIDE

REACTIONS (4)
  - Blood calcium increased [Recovered/Resolved]
  - Blood glucose fluctuation [Not Recovered/Not Resolved]
  - Alanine aminotransferase increased [Not Recovered/Not Resolved]
  - Blood magnesium decreased [Not Recovered/Not Resolved]

NARRATIVE: CASE EVENT DATE: 200808
